FAERS Safety Report 4599839-1 (Version None)
Quarter: 2005Q1

REPORT INFORMATION
  Report Type: 
  Country: None (occurrence: None)
  Receive Date: 20050304
  Receipt Date: 20050304
  Transmission Date: 20050727
  Serious: Yes (Other)
  Sender: FDA-Public Use
  Company Number: None

PATIENT
  Age: 31 Year
  Sex: Male
  Weight: 53.978 kg

DRUGS (2)
  1. RISPERDAL [Suspect]
     Indication: PSYCHOTIC DISORDER
     Dosage: 0.5 MG/2 TABS PO/D
     Route: 048
     Dates: start: 20050131, end: 20050202
  2. DOWN'S SYNDROME [Concomitant]

REACTIONS (1)
  - SYNCOPE [None]
